FAERS Safety Report 22007839 (Version 1)
Quarter: 2023Q1

REPORT INFORMATION
  Report Type: Spontaneous
  Country: HU (occurrence: HU)
  Receive Date: 20230218
  Receipt Date: 20230218
  Transmission Date: 20230418
  Serious: Yes (Death)
  Sender: FDA-Public Use
  Company Number: None

PATIENT
  Age: 66 Year
  Sex: Male

DRUGS (13)
  1. SKYRIZI [Suspect]
     Active Substance: RISANKIZUMAB-RZAA
     Indication: Psoriasis
     Dosage: TIME INTERVAL: 1 TOTAL
     Route: 058
     Dates: start: 20220830, end: 20220830
  2. SKYRIZI [Suspect]
     Active Substance: RISANKIZUMAB-RZAA
     Indication: Psoriatic arthropathy
  3. MILURIT 100 mg [Concomitant]
     Indication: Psoriatic arthropathy
     Route: 048
  4. CLOZAPINE [Concomitant]
     Active Substance: CLOZAPINE
     Indication: Affective disorder
     Route: 048
  5. Meforal 1000 mg [Concomitant]
     Indication: Product used for unknown indication
     Route: 048
  6. Melox EP 15 mg [Concomitant]
     Indication: Psoriatic arthropathy
     Route: 048
  7. FUROSEMIDE [Concomitant]
     Active Substance: FUROSEMIDE
     Indication: Product used for unknown indication
     Route: 048
  8. BETAHISTIN-RATIOPHARM [Concomitant]
     Indication: Product used for unknown indication
     Route: 048
  9. VITAMIN D3 [Concomitant]
     Active Substance: CHOLECALCIFEROL
     Indication: Product used for unknown indication
     Route: 048
  10. Kaldyum 600 mg [Concomitant]
     Indication: Product used for unknown indication
     Route: 048
  11. Acilesol 20 mg [Concomitant]
     Indication: Product used for unknown indication
     Route: 048
  12. Citrokalcium 200 mg [Concomitant]
     Indication: Product used for unknown indication
     Route: 048
  13. MEDROL [Concomitant]
     Active Substance: METHYLPREDNISOLONE
     Indication: Psoriatic arthropathy
     Route: 048

REACTIONS (1)
  - Pulmonary embolism [Fatal]

NARRATIVE: CASE EVENT DATE: 20220922
